FAERS Safety Report 19559543 (Version 11)
Quarter: 2023Q1

REPORT INFORMATION
  Report Type: Report from Study
  Country: US (occurrence: None)
  Receive Date: 20210715
  Receipt Date: 20230111
  Transmission Date: 20230417
  Serious: Yes (Death, Hospitalization, Other)
  Sender: FDA-Public Use
  Company Number: US-ROCHE-2631535

PATIENT
  Age: 65 Year
  Sex: Female
  Weight: 78 kg

DRUGS (34)
  1. ATEZOLIZUMAB [Suspect]
     Active Substance: ATEZOLIZUMAB
     Indication: Diffuse large B-cell lymphoma
     Dosage: ON 25/MAR/2020, SHE RECEIVED LAST DOSE OF INTRAVENOUS ATEZOLIZUMAB (1200 MG) PRIOR TO THE ONSET OF S
     Route: 041
     Dates: start: 20191121
  2. ATEZOLIZUMAB [Suspect]
     Active Substance: ATEZOLIZUMAB
     Dosage: LAST ADMINISTERED DATE 14/JAN/2020?TOTAL DOSE ADMINISTERED THIS DOSE: 1680 MG
     Route: 042
     Dates: start: 20191231
  3. ATEZOLIZUMAB [Suspect]
     Active Substance: ATEZOLIZUMAB
     Route: 042
     Dates: start: 202002
  4. ATEZOLIZUMAB [Suspect]
     Active Substance: ATEZOLIZUMAB
     Dosage: ON 25/MAR/2020, SHE RECEIVED LAST DOSE OF INTRAVENOUS ATEZOLIZUMAB (1200 MG) PRIOR TO THE ONSET OF S
     Route: 042
     Dates: start: 202002, end: 202003
  5. RITUXIMAB [Suspect]
     Active Substance: RITUXIMAB
     Indication: Diffuse large B-cell lymphoma
     Dosage: ON 31/DEC/2019, RECEIVED SUBSEQUENT DOSE OF RITUXIMAB. ON 25/MAR/2020, HE RECEIVED LAST DOSE OF INTR
     Route: 041
     Dates: start: 20191121
  6. RITUXIMAB [Suspect]
     Active Substance: RITUXIMAB
     Route: 042
     Dates: start: 20191231
  7. RITUXIMAB [Suspect]
     Active Substance: RITUXIMAB
     Route: 042
     Dates: start: 202002, end: 202003
  8. RITUXIMAB [Suspect]
     Active Substance: RITUXIMAB
     Route: 042
     Dates: start: 202003
  9. GEMCITABINE HYDROCHLORIDE [Suspect]
     Active Substance: GEMCITABINE HYDROCHLORIDE
     Indication: Diffuse large B-cell lymphoma
     Route: 042
     Dates: start: 202002, end: 202003
  10. GEMCITABINE HYDROCHLORIDE [Suspect]
     Active Substance: GEMCITABINE HYDROCHLORIDE
     Route: 042
     Dates: start: 20191121
  11. GEMCITABINE HYDROCHLORIDE [Suspect]
     Active Substance: GEMCITABINE HYDROCHLORIDE
     Dosage: LAST ADMINISTERED DATE 31/DEC/2019
     Route: 042
     Dates: start: 20191231
  12. OXALIPLATIN [Suspect]
     Active Substance: OXALIPLATIN
     Indication: Diffuse large B-cell lymphoma
     Route: 042
     Dates: start: 202002
  13. OXALIPLATIN [Suspect]
     Active Substance: OXALIPLATIN
     Route: 042
     Dates: start: 20191121
  14. OXALIPLATIN [Suspect]
     Active Substance: OXALIPLATIN
     Route: 042
     Dates: start: 20191231
  15. LORAZEPAM [Concomitant]
     Active Substance: LORAZEPAM
  16. ACYCLOVIR [Concomitant]
     Active Substance: ACYCLOVIR
  17. ALBUTEROL [Concomitant]
     Active Substance: ALBUTEROL
  18. ALENDRONATE [Concomitant]
     Active Substance: ALENDRONATE SODIUM
  19. APIXABAN [Concomitant]
     Active Substance: APIXABAN
  20. ATENOLOL [Concomitant]
     Active Substance: ATENOLOL
  21. CALCIUM CARBONATE [Concomitant]
     Active Substance: CALCIUM CARBONATE
  22. CHOLECALCIFEROL [Concomitant]
     Active Substance: CHOLECALCIFEROL
  23. DOCUSATE [Concomitant]
     Active Substance: DOCUSATE
  24. GABAPENTIN [Concomitant]
     Active Substance: GABAPENTIN
  25. HYDROXYZINE [Concomitant]
     Active Substance: HYDROXYZINE HYDROCHLORIDE
  26. LEVOTHYROXINE [Concomitant]
     Active Substance: LEVOTHYROXINE
  27. MONTELUKAST [Concomitant]
     Active Substance: MONTELUKAST SODIUM
  28. OMEPRAZOLE [Concomitant]
     Active Substance: OMEPRAZOLE
  29. ONDANSETRON [Concomitant]
     Active Substance: ONDANSETRON
  30. OXYCODONE [Concomitant]
     Active Substance: OXYCODONE
  31. POLYETHYLENE GLYCOL 3350 [Concomitant]
     Active Substance: POLYETHYLENE GLYCOL 3350
  32. POTASSIUM CHLORIDE [Concomitant]
     Active Substance: POTASSIUM CHLORIDE
  33. PROMETHAZINE [Concomitant]
     Active Substance: PROMETHAZINE HYDROCHLORIDE
  34. SENNA [Concomitant]
     Active Substance: SENNA LEAF\SENNOSIDES\SENNOSIDES A AND B

REACTIONS (11)
  - Disease progression [Fatal]
  - Hypotension [Unknown]
  - Neutrophil count decreased [Unknown]
  - Sepsis [Unknown]
  - Febrile neutropenia [Recovered/Resolved with Sequelae]
  - Fracture [Unknown]
  - Pyrexia [Unknown]
  - Dyspnoea [Recovered/Resolved]
  - Pneumonia [Unknown]
  - Atrial fibrillation [Unknown]
  - Urinary tract obstruction [Unknown]

NARRATIVE: CASE EVENT DATE: 20191122
